FAERS Safety Report 6621012-3 (Version None)
Quarter: 2010Q1

REPORT INFORMATION
  Report Type: 
  Country: None (occurrence: None)
  Receive Date: 20100309
  Receipt Date: 20100304
  Transmission Date: 20100710
  Serious: Yes (Death)
  Sender: FDA-Public Use
  Company Number: PHHY2010BR13182

PATIENT
  Sex: Female

DRUGS (2)
  1. EXELON [Suspect]
     Dosage: UNK
     Dates: start: 20040101
  2. MEMANTINE HCL [Concomitant]

REACTIONS (3)
  - CARDIOMYOPATHY [None]
  - NAUSEA [None]
  - VOMITING [None]
